FAERS Safety Report 17070896 (Version 4)
Quarter: 2020Q1

REPORT INFORMATION
  Report Type: Spontaneous
  Country: JP (occurrence: JP)
  Receive Date: 20191125
  Receipt Date: 20200129
  Transmission Date: 20200409
  Serious: Yes (Hospitalization, Other)
  Sender: FDA-Public Use
  Company Number: JP-PFIZER INC-2019508286

PATIENT
  Age: 2 Year
  Sex: Female

DRUGS (7)
  1. MIDAZOLAM HYDROCHLORIDE. [Concomitant]
     Active Substance: MIDAZOLAM HYDROCHLORIDE
     Indication: TONIC CONVULSION
     Dosage: UNK (MAINTENANCE INFUSION)
     Route: 041
  2. NOBELBAR [Suspect]
     Active Substance: PHENOBARBITAL SODIUM
     Indication: TONIC CONVULSION
     Dosage: UNK (MAINTENANCE INFUSION)
     Route: 065
  3. THIOPENTAL SODIUM. [Suspect]
     Active Substance: THIOPENTAL SODIUM
     Indication: TONIC CONVULSION
     Dosage: 6 MG/KG, UNK 6 MG/KG,1 HR (COMMENCED FROM DAY TWO OF ADMISSION)MAINTENANCE INFUSION
     Route: 041
  4. THIOPENTAL SODIUM. [Suspect]
     Active Substance: THIOPENTAL SODIUM
     Dosage: UNK (TAPERING OF THE DOSAGE)6 MG/KG,1 HR (COMMENCED FROM DAY TWO OF ADMISSION)MAINTENANCE INFUSIO
     Route: 041
  5. FOSTOIN [Suspect]
     Active Substance: FOSPHENYTOIN SODIUM
     Indication: TONIC CONVULSION
     Dosage: UNK (MAINTENANCE INFUSION)
     Route: 065
  6. FOSTOIN [Suspect]
     Active Substance: FOSPHENYTOIN SODIUM
     Indication: ELECTROENCEPHALOGRAM ABNORMAL
  7. NOBELBAR [Suspect]
     Active Substance: PHENOBARBITAL SODIUM
     Indication: ELECTROENCEPHALOGRAM ABNORMAL

REACTIONS (5)
  - Cardiovascular insufficiency [Unknown]
  - Ileus paralytic [Recovering/Resolving]
  - Peritonitis [Unknown]
  - Septic shock [Unknown]
  - Drug ineffective [Unknown]
